FAERS Safety Report 4693302-5 (Version None)
Quarter: 2005Q2

REPORT INFORMATION
  Report Type: 
  Country: None (occurrence: None)
  Receive Date: 20050617
  Receipt Date: 20050608
  Transmission Date: 20051028
  Serious: Yes (Other)
  Sender: FDA-Public Use
  Company Number: CN-GLAXOSMITHKLINE-B0384466A

PATIENT
  Sex: Male

DRUGS (2)
  1. TAGAMET [Suspect]
     Indication: GASTRIC ULCER
     Dates: start: 19970101
  2. TAGAMET [Suspect]
     Dates: start: 19970101

REACTIONS (1)
  - SEXUAL DYSFUNCTION [None]
